FAERS Safety Report 24882276 (Version 1)
Quarter: 2025Q1

REPORT INFORMATION
  Report Type: Spontaneous
  Country: US (occurrence: US)
  Receive Date: 20250124
  Receipt Date: 20250124
  Transmission Date: 20250408
  Serious: Yes (Death, Hospitalization, Other)
  Sender: AMGEN
  Company Number: US-AMGEN-USASP2025013410

PATIENT

DRUGS (2)
  1. PREDNISONE [Suspect]
     Active Substance: PREDNISONE
     Indication: Non-Hodgkin^s lymphoma
     Route: 065
  2. RITUXIMAB [Suspect]
     Active Substance: RITUXIMAB
     Indication: Non-Hodgkin^s lymphoma
     Route: 065

REACTIONS (21)
  - Septic shock [Fatal]
  - Multiple organ dysfunction syndrome [Fatal]
  - Sepsis [Unknown]
  - Non-Hodgkin^s lymphoma [Unknown]
  - Waldenstrom^s macroglobulinaemia [Unknown]
  - Marginal zone lymphoma [Unknown]
  - Mantle cell lymphoma [Unknown]
  - B-cell lymphoma [Unknown]
  - Burkitt^s lymphoma [Unknown]
  - Diffuse large B-cell lymphoma [Unknown]
  - T-cell lymphoma [Unknown]
  - Richter^s syndrome [Unknown]
  - Extranodal marginal zone B-cell lymphoma (MALT type) [Unknown]
  - Proteus test positive [Unknown]
  - Klebsiella test positive [Unknown]
  - Citrobacter test positive [Unknown]
  - Staphylococcus test positive [Unknown]
  - Parvimonas test positive [Unknown]
  - Nocardia test positive [Unknown]
  - Escherichia test positive [Unknown]
  - Streptococcus test positive [Unknown]
